FAERS Safety Report 7021158-4 (Version None)
Quarter: 2010Q3

REPORT INFORMATION
  Report Type: 
  Country: None (occurrence: None)
  Receive Date: 20100929
  Receipt Date: 20100917
  Transmission Date: 20110219
  Serious: Yes (Hospitalization)
  Sender: FDA-Public Use
  Company Number: US-WATSON-2010-12451

PATIENT
  Age: 34 Year
  Sex: Female

DRUGS (1)
  1. LEVORA 0.15/30-28 (WATSON LABORATORIES) [Suspect]
     Indication: CONTRACEPTION
     Dosage: 1 TABLET, DAILY
     Route: 048
     Dates: start: 20100301, end: 20100910

REACTIONS (4)
  - DRUG INEFFECTIVE [None]
  - ECTOPIC PREGNANCY [None]
  - FALLOPIAN TUBE PERFORATION [None]
  - MENORRHAGIA [None]
